FAERS Safety Report 8169355-9 (Version None)
Quarter: 2012Q1

REPORT INFORMATION
  Report Type: 
  Country: None (occurrence: None)
  Receive Date: 20120222
  Receipt Date: 20120206
  Transmission Date: 20120608
  Serious: Yes (Hospitalization)
  Sender: FDA-Public Use
  Company Number: SAN_00036_2012

PATIENT
  Age: 34 Year
  Sex: Female

DRUGS (2)
  1. METFORMIN HYDROCHLORIDE [Suspect]
     Indication: PRODUCT USED FOR UNKNOWN INDICATION
     Dosage: (50000 MG, NOT THE RECOMMENDED DOSE ORAL)
     Route: 048
  2. SERTRALINE HYDROCHLORIDE [Suspect]
     Indication: PRODUCT USED FOR UNKNOWN INDICATION
     Dosage: (50 MG 10X/DAY ORAL)
     Route: 048

REACTIONS (14)
  - TOXICITY TO VARIOUS AGENTS [None]
  - BLOOD SODIUM DECREASED [None]
  - VOMITING [None]
  - HYPOTENSION [None]
  - OVERDOSE [None]
  - HAEMODIALYSIS [None]
  - HYPOTHERMIA [None]
  - LACTIC ACIDOSIS [None]
  - NAUSEA [None]
  - DECREASED APPETITE [None]
  - ABDOMINAL PAIN [None]
  - SOMNOLENCE [None]
  - RESPIRATORY FAILURE [None]
  - ARRHYTHMIA [None]
